FAERS Safety Report 5122346-4 (Version None)
Quarter: 2006Q4

REPORT INFORMATION
  Report Type: 
  Country: None (occurrence: None)
  Receive Date: 20061004
  Receipt Date: 20060918
  Transmission Date: 20070319
  Serious: Yes (Other)
  Sender: FDA-Public Use
  Company Number: 2006US-03274

PATIENT
  Age: 20 Year

DRUGS (1)
  1. ISOTRETINOIN [Suspect]

REACTIONS (2)
  - DYSPNOEA [None]
  - RASH [None]
